FAERS Safety Report 10072184 (Version 1)
Quarter: 2014Q2

REPORT INFORMATION
  Report Type: Spontaneous
  Country: US (occurrence: None)
  Receive Date: 20140410
  Receipt Date: 20140410
  Transmission Date: 20141212
  Serious: No
  Sender: FDA-Public Use
  Company Number: None

PATIENT
  Age: 59 Year
  Sex: Female

DRUGS (5)
  1. LISINOPRIL [Suspect]
     Indication: HYPERTENSION
     Dosage: TAKE ONE TABLET
     Route: 048
     Dates: start: 20140407, end: 20140407
  2. VITAMIN C [Concomitant]
  3. GARLIC [Concomitant]
  4. VITAMIN B-COMPLEX [Concomitant]
  5. COQ ENZYME [Concomitant]

REACTIONS (10)
  - Nausea [None]
  - Depression [None]
  - Diarrhoea [None]
  - Headache [None]
  - Feeling hot [None]
  - Dizziness [None]
  - Abdominal discomfort [None]
  - Fatigue [None]
  - Lethargy [None]
  - Nasal congestion [None]
